FAERS Safety Report 15325164 (Version 5)
Quarter: 2018Q4

REPORT INFORMATION
  Report Type: Spontaneous
  Country: JP (occurrence: JP)
  Receive Date: 20180828
  Receipt Date: 20181012
  Transmission Date: 20190204
  Serious: Yes (Life-Threatening, Hospitalization, Other)
  Sender: FDA-Public Use
  Company Number: JP-009507513-1808JPN001726J

PATIENT
  Age: 79 Year
  Sex: Female
  Weight: 43 kg

DRUGS (8)
  1. KEYTRUDA [Suspect]
     Active Substance: PEMBROLIZUMAB
     Indication: LUNG ADENOCARCINOMA STAGE IV
     Dosage: 200 MG, Q3W
     Route: 041
     Dates: start: 20180725, end: 20180725
  2. SULBACILLIN [Suspect]
     Active Substance: AMPICILLIN SODIUM\SULBACTAM SODIUM
     Indication: PNEUMONIA
     Dosage: 3 G, QID
     Route: 042
     Dates: start: 20180808, end: 20180813
  3. UNITALC (STERILE TALC) [Suspect]
     Active Substance: TALC
     Indication: PLEURAL ADHESION
     Dosage: 4 G, QD
     Route: 038
     Dates: start: 20180703
  4. CALONAL [Concomitant]
     Active Substance: ACETAMINOPHEN
     Indication: PAIN
     Dosage: 50 MG, TID
     Route: 048
     Dates: start: 20180711
  5. BFLUID [Suspect]
     Active Substance: AMINO ACIDS\DEXTROSE\ELECTROLYTES NOS\VITAMINS
     Indication: DECREASED APPETITE
     Dosage: 1000 ML, QD
     Route: 042
     Dates: start: 20180809, end: 20180813
  6. CODEINE PHOSPHATE HYDRATE [Concomitant]
     Active Substance: CODEINE PHOSPHATE
     Indication: COUGH
     Dosage: 1 G, PRN
     Route: 048
     Dates: start: 20180629
  7. HUSTAZOL [Concomitant]
     Active Substance: CLOPERASTINE
     Indication: COUGH
     Dosage: 20 MICROGRAM, TID
     Route: 048
     Dates: start: 20180627
  8. NIFEDIPINE. [Concomitant]
     Active Substance: NIFEDIPINE
     Indication: HYPERTENSION
     Dosage: 40 MG, QD
     Route: 048

REACTIONS (3)
  - Ventricular tachycardia [Recovered/Resolved]
  - Electrocardiogram QT prolonged [Recovered/Resolved]
  - Pneumonia [Not Recovered/Not Resolved]

NARRATIVE: CASE EVENT DATE: 20180808
